FAERS Safety Report 9286933 (Version 1)
Quarter: 2013Q2

REPORT INFORMATION
  Report Type: Spontaneous
  Country: US (occurrence: US)
  Receive Date: 20130513
  Receipt Date: 20130513
  Transmission Date: 20140414
  Serious: No
  Sender: FDA-Public Use
  Company Number: US-ASTRAZENECA-2013SE30839

PATIENT
  Age: 63 Year
  Sex: Female
  Weight: 74.8 kg

DRUGS (9)
  1. PRILOSEC [Suspect]
     Indication: GASTROOESOPHAGEAL REFLUX DISEASE
     Route: 048
     Dates: end: 201210
  2. PRILOSEC OTC [Suspect]
     Route: 048
  3. CRESTOR [Suspect]
     Indication: BLOOD CHOLESTEROL ABNORMAL
     Route: 048
     Dates: end: 2001
  4. MAGNESIUM [Concomitant]
     Indication: NEUROPATHY PERIPHERAL
     Dosage: 400MG
     Dates: start: 201212
  5. LISINOPRIL [Concomitant]
     Indication: BLOOD PRESSURE ABNORMAL
     Dosage: 5MG
     Dates: start: 1983
  6. ACYCLOVIR [Concomitant]
     Indication: HERPES SIMPLEX
     Dosage: 400MG
     Dates: start: 2012
  7. CYMBALTA [Concomitant]
     Indication: BIPOLAR DISORDER
     Dosage: 60MG
     Dates: start: 2011
  8. CYMBALTA [Concomitant]
     Indication: FIBROMYALGIA
     Dosage: 60MG
     Dates: start: 2011
  9. LAMOTRIGINE [Concomitant]
     Indication: BIPOLAR DISORDER
     Dosage: 200MG
     Dates: start: 2011

REACTIONS (10)
  - Blood potassium decreased [Unknown]
  - Vitamin D decreased [Unknown]
  - Gastrooesophageal reflux disease [Unknown]
  - Blood pressure abnormal [Unknown]
  - Blood cholesterol abnormal [Unknown]
  - Herpes simplex [Unknown]
  - Glycosylated haemoglobin increased [Unknown]
  - Intentional drug misuse [Unknown]
  - Drug dose omission [Unknown]
  - Drug ineffective [Unknown]
